FAERS Safety Report 7257337-0 (Version None)
Quarter: 2011Q1

REPORT INFORMATION
  Report Type: 
  Country: None (occurrence: None)
  Receive Date: 20110129
  Receipt Date: 20100719
  Transmission Date: 20110831
  Serious: No
  Sender: FDA-Public Use
  Company Number: US-ABBOTT-10P-163-0658817-00

PATIENT
  Sex: Male

DRUGS (7)
  1. NORVASC [Concomitant]
  2. TOPROL-XL [Concomitant]
  3. NAPROSYN [Concomitant]
  4. ASA [Concomitant]
  5. HUMIRA [Suspect]
     Indication: RHEUMATOID ARTHRITIS
     Dates: start: 20091001
  6. FLOMAX [Concomitant]
  7. SIMVASTATIN [Concomitant]

REACTIONS (5)
  - DEVICE MALFUNCTION [None]
  - INJECTION SITE PAIN [None]
  - INCORRECT DOSE ADMINISTERED [None]
  - WRONG TECHNIQUE IN DRUG USAGE PROCESS [None]
  - PAIN [None]
